FAERS Safety Report 18146117 (Version 1)
Quarter: 2020Q3

REPORT INFORMATION
  Report Type: Spontaneous
  Country: CA (occurrence: CA)
  Receive Date: 20200813
  Receipt Date: 20200813
  Transmission Date: 20201103
  Serious: Yes (Other)
  Sender: FDA-Public Use
  Company Number: CA-PFIZER INC-2020306233

PATIENT
  Sex: Female

DRUGS (1)
  1. ZOLEDRONIC ACID [Suspect]
     Active Substance: ZOLEDRONIC ACID
     Indication: OSTEOPOROSIS
     Dosage: 1 EVERY 1 YEAR
     Route: 042

REACTIONS (4)
  - Vein rupture [Unknown]
  - Injection site haematoma [Unknown]
  - Off label use [Unknown]
  - Product use in unapproved indication [Unknown]
